FAERS Safety Report 6899913-0 (Version None)
Quarter: 2010Q3

REPORT INFORMATION
  Report Type: 
  Country: None (occurrence: None)
  Receive Date: 20100708
  Receipt Date: 20100507
  Transmission Date: 20110219
  Serious: Yes (Hospitalization, Other)
  Sender: FDA-Public Use
  Company Number: 2010058069

PATIENT
  Age: 33 Year
  Sex: Male
  Weight: 61.7 kg

DRUGS (4)
  1. CHANTIX [Suspect]
     Indication: SMOKING CESSATION THERAPY
     Dosage: 0.5 MG, 1X/DAY, ORAL; 0.5 MG, 2X/DAY, ORAL
     Route: 048
     Dates: start: 20100101, end: 20100101
  2. CHANTIX [Suspect]
     Indication: SMOKING CESSATION THERAPY
     Dosage: 0.5 MG, 1X/DAY, ORAL; 0.5 MG, 2X/DAY, ORAL
     Route: 048
     Dates: start: 20100101, end: 20100101
  3. PRO-AIR (PROCATEROL HYDROCHLORIDE) [Concomitant]
  4. ADVAIR (FLUTICASONE PROPIONATE, SALMETERO XINAFOATE) [Concomitant]

REACTIONS (1)
  - PSYCHOTIC DISORDER [None]
